FAERS Safety Report 7808583-6 (Version None)
Quarter: 2011Q4

REPORT INFORMATION
  Report Type: 
  Country: None (occurrence: None)
  Receive Date: 20111012
  Receipt Date: 20111007
  Transmission Date: 20120403
  Serious: No
  Sender: FDA-Public Use
  Company Number: US-PFIZER INC-2011240225

PATIENT
  Age: 46 Year
  Sex: Female

DRUGS (6)
  1. GABAPENTIN [Suspect]
     Dosage: 15 ML, 3X/DAY
     Route: 048
     Dates: start: 20110801
  2. TRAZODONE [Concomitant]
     Dosage: UNK
  3. MIRAPEX [Concomitant]
     Dosage: UNK
  4. DESIPRAMINE [Concomitant]
     Dosage: UNK
  5. LEXAPRO [Concomitant]
     Dosage: UNK
  6. AMBIEN [Concomitant]
     Dosage: UNK

REACTIONS (1)
  - DIARRHOEA [None]
